FAERS Safety Report 4959020-0 (Version None)
Quarter: 2006Q1

REPORT INFORMATION
  Report Type: 
  Country: None (occurrence: None)
  Receive Date: 20060324
  Receipt Date: 20060309
  Transmission Date: 20060701
  Serious: Yes (Death)
  Sender: FDA-Public Use
  Company Number: 2006SP001179

PATIENT
  Age: 9 Year
  Sex: Male

DRUGS (1)
  1. XOPENEX [Suspect]
     Indication: VIRAL UPPER RESPIRATORY TRACT INFECTION
     Dosage: INHALATION
     Route: 055
     Dates: start: 20060128, end: 20060129

REACTIONS (4)
  - CARDIO-RESPIRATORY ARREST [None]
  - CONVULSION [None]
  - CRYING [None]
  - SHOCK [None]
